FAERS Safety Report 25087064 (Version 1)
Quarter: 2025Q1

REPORT INFORMATION
  Report Type: Spontaneous
  Country: US (occurrence: US)
  Receive Date: 20250318
  Receipt Date: 20250318
  Transmission Date: 20250408
  Serious: Yes (Life-Threatening)
  Sender: Haleon PLC
  Company Number: US-HALEON-2233388

PATIENT
  Age: 21 Year
  Sex: Female
  Weight: 60.9 kg

DRUGS (2)
  1. IBUPROFEN [Suspect]
     Active Substance: IBUPROFEN
     Indication: Limb discomfort
     Dates: start: 20250220, end: 20250221
  2. PREDNISONE [Suspect]
     Active Substance: PREDNISONE
     Indication: Rash maculo-papular

REACTIONS (2)
  - Alanine aminotransferase increased [Recovering/Resolving]
  - Aspartate aminotransferase increased [Recovering/Resolving]
